FAERS Safety Report 13594119 (Version 4)
Quarter: 2017Q3

REPORT INFORMATION
  Report Type: Spontaneous
  Country: DE (occurrence: DE)
  Receive Date: 20170530
  Receipt Date: 20170711
  Transmission Date: 20171127
  Serious: Yes (Hospitalization, Other)
  Sender: FDA-Public Use
  Company Number: DE-BAYER-2017-097607

PATIENT
  Age: 62 Year
  Sex: Male
  Weight: 68 kg

DRUGS (15)
  1. LISINOPRIL. [Concomitant]
     Active Substance: LISINOPRIL
     Dosage: 10 MG, HS
  2. TOREM [Concomitant]
     Active Substance: TORSEMIDE
     Dosage: 10 MG, OM
  3. XTANDI [Concomitant]
     Active Substance: ENZALUTAMIDE
     Dosage: 40 MG, BID
  4. XOFIGO [Suspect]
     Active Substance: RADIUM RA-223 DICHLORIDE
     Indication: PROSTATE CANCER
     Dosage: 3.45 MBQ, ONCE
     Route: 042
     Dates: start: 20170105, end: 20170105
  5. XOFIGO [Suspect]
     Active Substance: RADIUM RA-223 DICHLORIDE
     Indication: PROSTATE CANCER
     Dosage: 3.45 MBQ, ONCE
     Route: 042
     Dates: start: 20170202, end: 20170202
  6. MACROGOL [Concomitant]
     Active Substance: POLYETHYLENE GLYCOLS
     Dosage: 1 DF, OM
  7. BIFITERAL [Concomitant]
     Active Substance: LACTULOSE
     Dosage: 20 ML, OM
  8. XOFIGO [Suspect]
     Active Substance: RADIUM RA-223 DICHLORIDE
     Indication: PROSTATE CANCER
     Dosage: 3.89 MBQ, ONCE
     Route: 042
     Dates: start: 20161013, end: 20161013
  9. SIMVASTATIN. [Concomitant]
     Active Substance: SIMVASTATIN
     Dosage: 20 MG, OM
  10. KALIUM-R [Concomitant]
     Dosage: UNK
  11. XOFIGO [Suspect]
     Active Substance: RADIUM RA-223 DICHLORIDE
     Indication: PROSTATE CANCER
     Dosage: 3.6 MBQ, ONCE
     Route: 042
     Dates: start: 20161110, end: 20161110
  12. BISOPROLOL [Concomitant]
     Active Substance: BISOPROLOL
     Dosage: 5 MG, BID
  13. SPASMOLYT [Concomitant]
     Dosage: UNK
  14. XOFIGO [Suspect]
     Active Substance: RADIUM RA-223 DICHLORIDE
     Indication: PROSTATE CANCER
     Dosage: 3.6 MBQ, ONCE
     Route: 042
     Dates: start: 20161208, end: 20161208
  15. XOFIGO [Suspect]
     Active Substance: RADIUM RA-223 DICHLORIDE
     Indication: PROSTATE CANCER
     Dosage: 3.49 MBQ, ONCE
     Route: 042
     Dates: start: 20170302, end: 20170302

REACTIONS (3)
  - Ileus [None]
  - Gastrointestinal mucosal disorder [None]
  - Prostate cancer [None]

NARRATIVE: CASE EVENT DATE: 201610
